FAERS Safety Report 13192534 (Version 13)
Quarter: 2017Q4

REPORT INFORMATION
  Report Type: Report from Study
  Country: BE (occurrence: BE)
  Receive Date: 20170207
  Receipt Date: 20171027
  Transmission Date: 20180320
  Serious: Yes (Death, Hospitalization, Disabling)
  Sender: FDA-Public Use
  Company Number: BE-PFIZER INC-2017039675

PATIENT
  Age: 59 Year
  Sex: Female
  Weight: 41 kg

DRUGS (1)
  1. PACLITAXEL. [Suspect]
     Active Substance: PACLITAXEL
     Indication: ADENOCARCINOMA GASTRIC
     Dosage: 107 MG, UNK
     Route: 042
     Dates: start: 20161114, end: 20161227

REACTIONS (3)
  - Alanine aminotransferase increased [Not Recovered/Not Resolved]
  - Aspartate aminotransferase increased [Not Recovered/Not Resolved]
  - Neoplasm progression [Fatal]

NARRATIVE: CASE EVENT DATE: 20170109
